FAERS Safety Report 25601559 (Version 1)
Quarter: 2025Q3

REPORT INFORMATION
  Report Type: Spontaneous
  Country: TW (occurrence: TW)
  Receive Date: 20250724
  Receipt Date: 20250724
  Transmission Date: 20251021
  Serious: Yes (Hospitalization, Other)
  Sender: UCB
  Company Number: TW-GSK-TW2025APC089275

PATIENT
  Age: 52 Year
  Sex: Male
  Weight: 68 kg

DRUGS (7)
  1. KEPPRA [Suspect]
     Active Substance: LEVETIRACETAM
     Indication: Product used for unknown indication
     Dates: start: 20250511, end: 20250519
  2. KEPPRA [Suspect]
     Active Substance: LEVETIRACETAM
     Dates: start: 20250522, end: 20250609
  3. OXACILLIN SODIUM [Concomitant]
     Active Substance: OXACILLIN SODIUM
     Indication: Product used for unknown indication
     Dates: start: 20250514
  4. OXACILLIN SODIUM [Concomitant]
     Active Substance: OXACILLIN SODIUM
  5. OXACILLIN SODIUM [Concomitant]
     Active Substance: OXACILLIN SODIUM
  6. OXACILLIN SODIUM [Concomitant]
     Active Substance: OXACILLIN SODIUM
     Dates: end: 20250623
  7. ACETAMINOPHEN [Concomitant]
     Active Substance: ACETAMINOPHEN
     Indication: Product used for unknown indication

REACTIONS (3)
  - Eosinophilia [Recovered/Resolved]
  - Drug reaction with eosinophilia and systemic symptoms [Recovered/Resolved]
  - Rash [Recovered/Resolved]

NARRATIVE: CASE EVENT DATE: 20250602
